FAERS Safety Report 23058809 (Version 3)
Quarter: 2023Q4

REPORT INFORMATION
  Report Type: Spontaneous
  Country: US (occurrence: US)
  Receive Date: 20231012
  Receipt Date: 20231115
  Transmission Date: 20240110
  Serious: No
  Sender: FDA-Public Use
  Company Number: US-PFIZER INC-PV202300168724

PATIENT
  Age: 59 Year
  Sex: Male

DRUGS (3)
  1. INLYTA [Suspect]
     Active Substance: AXITINIB
     Dosage: 5 MG
     Dates: end: 20231020
  2. INLYTA [Suspect]
     Active Substance: AXITINIB
     Dosage: 5 MG
  3. KEYTRUDA [Concomitant]
     Active Substance: PEMBROLIZUMAB
     Dosage: UNK

REACTIONS (3)
  - Back pain [Unknown]
  - Hepatic enzyme increased [Unknown]
  - Headache [Recovered/Resolved]
